FAERS Safety Report 8914900 (Version 5)
Quarter: 2014Q1

REPORT INFORMATION
  Report Type: Report from Study
  Country: BR (occurrence: BR)
  Receive Date: 20121119
  Receipt Date: 20140129
  Transmission Date: 20141002
  Serious: Yes (Hospitalization, Other)
  Sender: FDA-Public Use
  Company Number: BR-ROCHE-580022

PATIENT
  Age: 50 Year
  Sex: Female
  Weight: 65 kg

DRUGS (13)
  1. MABTHERA [Suspect]
     Indication: RHEUMATOID ARTHRITIS
     Dosage: STRENGTH: 500 MG/50ML?DOSAGE: 1 G/INFUSION
     Route: 042
     Dates: start: 20080528, end: 20080611
  2. MABTHERA [Suspect]
     Dosage: LATEST INFUSION OF RITUXIMAB ON MAY/2013
     Route: 042
  3. TRYPTANOL [Concomitant]
     Indication: ANALGESIC THERAPY
     Dosage: DRUG: TRIPTANOL
     Route: 065
  4. NORIPURUM [Concomitant]
     Indication: ANAEMIA
  5. ACETYLSALICYLIC ACID [Concomitant]
     Indication: PLATELET AGGREGATION INHIBITION
  6. URSODIOL [Concomitant]
     Indication: RENAL DISORDER
     Dosage: DRUG: URSACOL
     Route: 065
  7. ARCOXIA [Concomitant]
     Indication: INFLAMMATION
  8. PREDNISONE [Concomitant]
     Route: 065
  9. URSACOL [Concomitant]
     Route: 065
  10. AMITRIPTYLINE [Concomitant]
     Route: 065
  11. MEXICAN YAM EXTRACT [Concomitant]
  12. ADEROGIL D3 [Concomitant]
  13. CALCIUM CARBONATE [Concomitant]

REACTIONS (7)
  - Herpes zoster [Recovering/Resolving]
  - Limb asymmetry [Recovered/Resolved]
  - Arthralgia [Not Recovered/Not Resolved]
  - Pain in extremity [Not Recovered/Not Resolved]
  - Hepatitis B [Recovered/Resolved]
  - Hand deformity [Unknown]
  - Bone loss [Not Recovered/Not Resolved]
